FAERS Safety Report 16899758 (Version 1)
Quarter: 2019Q4

REPORT INFORMATION
  Report Type: Spontaneous
  Country: US (occurrence: US)
  Receive Date: 20191009
  Receipt Date: 20191009
  Transmission Date: 20200122
  Serious: No
  Sender: FDA-Public Use
  Company Number: US-FRESENIUS KABI-FK201910935

PATIENT
  Sex: Male

DRUGS (1)
  1. NEOSTIGMINE METHYLSULFATE INJECTION, USP [Suspect]
     Active Substance: NEOSTIGMINE METHYLSULFATE
     Indication: NEUROMUSCULAR BLOCKADE REVERSAL
     Dosage: UNKNOWN
     Dates: start: 20190926, end: 20190926

REACTIONS (1)
  - Therapeutic product effect decreased [Unknown]

NARRATIVE: CASE EVENT DATE: 20190926
